FAERS Safety Report 5526302-3 (Version None)
Quarter: 2007Q4

REPORT INFORMATION
  Report Type: 
  Country: None (occurrence: None)
  Receive Date: 20071127
  Receipt Date: 20071121
  Transmission Date: 20080405
  Serious: Yes (Hospitalization)
  Sender: FDA-Public Use
  Company Number: PHFR2007GB03424

PATIENT
  Age: 55 Year
  Sex: Male
  Weight: 93 kg

DRUGS (3)
  1. TERBINAFINE HYDROCHLORIDE [Suspect]
     Indication: NAIL TINEA
     Dosage: 250 MG/DAY
     Route: 048
     Dates: start: 20070524
  2. AMOXICILLIN + CLAVULANATE POTASSIUM [Concomitant]
     Indication: LOWER RESPIRATORY TRACT INFECTION
     Route: 048
     Dates: start: 20070927, end: 20071005
  3. ALBUTEROL [Concomitant]
     Indication: LOWER RESPIRATORY TRACT INFECTION
     Dosage: 100 UG/DAY
     Dates: start: 20070927

REACTIONS (1)
  - CONGESTIVE CARDIOMYOPATHY [None]
